FAERS Safety Report 6859780-8 (Version None)
Quarter: 2010Q3

REPORT INFORMATION
  Report Type: 
  Country: None (occurrence: None)
  Receive Date: 20100720
  Receipt Date: 20100706
  Transmission Date: 20110219
  Serious: Yes (Hospitalization, Disabling, Other)
  Sender: FDA-Public Use
  Company Number: GB-RANBAXY-2010RR-35858

PATIENT
  Age: 69 Year
  Sex: Female

DRUGS (7)
  1. CIPROFIBRATE [Suspect]
     Indication: BLOOD CHOLESTEROL INCREASED
     Dosage: 160 MG, QD
     Route: 048
     Dates: start: 20100525, end: 20100609
  2. SIMVASTATIN [Suspect]
     Indication: BLOOD CHOLESTEROL INCREASED
     Dosage: 20 MG, QD
     Route: 048
     Dates: start: 20100525, end: 20100609
  3. ASPIRIN [Concomitant]
     Dosage: 75 MG, QD
     Route: 048
  4. DIPYRIDAMOLE [Concomitant]
     Dosage: 200 MG, BID
     Route: 048
  5. LANSOPRAZOLE [Concomitant]
     Indication: PROPHYLAXIS
     Dosage: 30 MG, QD
     Route: 048
  6. LANSOPRAZOLE [Concomitant]
     Indication: ULCER
  7. LORATADINE [Concomitant]
     Indication: HYPERSENSITIVITY
     Dosage: 10 MG, QD
     Route: 048
     Dates: start: 20100609

REACTIONS (1)
  - EYE SWELLING [None]
